FAERS Safety Report 10177716 (Version 1)
Quarter: 2014Q2

REPORT INFORMATION
  Report Type: Spontaneous
  Country: US (occurrence: US)
  Receive Date: 20140516
  Receipt Date: 20140516
  Transmission Date: 20141212
  Serious: Yes (Other)
  Sender: FDA-Public Use
  Company Number: US-SANOFI-AVENTIS-2013SA040600

PATIENT
  Age: 31 Year
  Sex: Male
  Weight: 98 kg

DRUGS (5)
  1. APIDRA [Suspect]
     Indication: TYPE 1 DIABETES MELLITUS
     Dosage: DOSE:2.8 UNIT(S)
     Route: 058
     Dates: start: 201301
  2. LYRICA [Concomitant]
     Indication: NEUROPATHY PERIPHERAL
  3. VESICARE [Concomitant]
  4. DAYQUIL ^FOX^ [Concomitant]
  5. MICARDIS [Concomitant]
     Indication: HYPERTENSION

REACTIONS (3)
  - Hypoglycaemic unconsciousness [Recovered/Resolved]
  - Hypoglycaemia [Recovered/Resolved]
  - Blood glucose decreased [Recovered/Resolved]
